FAERS Safety Report 12847479 (Version 1)
Quarter: 2016Q4

REPORT INFORMATION
  Report Type: Spontaneous
  Country: MX (occurrence: MX)
  Receive Date: 20161014
  Receipt Date: 20161014
  Transmission Date: 20170207
  Serious: Yes (Other)
  Sender: FDA-Public Use
  Company Number: MX-PFIZER INC-2016480128

PATIENT
  Sex: Male

DRUGS (3)
  1. NEUPAX [Concomitant]
     Dosage: UNK
  2. EPAMIN [Suspect]
     Active Substance: PHENYTOIN SODIUM
     Dosage: UNK
  3. DEPO-MEDROL [Suspect]
     Active Substance: METHYLPREDNISOLONE ACETATE
     Dosage: UNK

REACTIONS (1)
  - Abasia [Not Recovered/Not Resolved]
